FAERS Safety Report 5604286-7 (Version None)
Quarter: 2008Q1

REPORT INFORMATION
  Report Type: 
  Country: None (occurrence: None)
  Receive Date: 20080128
  Receipt Date: 20071127
  Transmission Date: 20080703
  Serious: Yes (Other)
  Sender: FDA-Public Use
  Company Number: CA-AVENTIS-200810219US

PATIENT
  Sex: Female

DRUGS (8)
  1. LANTUS [Suspect]
     Indication: DRUG USE FOR UNKNOWN INDICATION
     Route: 051
     Dates: end: 20071101
  2. LANTUS [Suspect]
     Route: 051
     Dates: start: 20071101, end: 20071117
  3. LANTUS [Suspect]
     Route: 051
     Dates: start: 20071117
  4. GLIBENCLAMIDE [Suspect]
     Dates: end: 20071117
  5. FUROSEMIDE [Suspect]
     Dosage: DOSE: UNK
     Dates: end: 20071101
  6. METFORMIN ER [Suspect]
     Dates: start: 20071117
  7. COZAAR [Concomitant]
     Indication: DRUG USE FOR UNKNOWN INDICATION
     Dosage: DOSE: UNK
  8. ASPIRIN [Concomitant]
     Indication: DRUG USE FOR UNKNOWN INDICATION
     Dosage: DOSE: UNK

REACTIONS (12)
  - BLOOD GLUCOSE DECREASED [None]
  - BLOOD GLUCOSE INCREASED [None]
  - COLD SWEAT [None]
  - CONSTIPATION [None]
  - DECREASED APPETITE [None]
  - INSOMNIA [None]
  - LACRIMATION INCREASED [None]
  - MUSCLE SPASMS [None]
  - MUSCULOSKELETAL DISCOMFORT [None]
  - NIGHT SWEATS [None]
  - URINE OUTPUT DECREASED [None]
  - VISION BLURRED [None]
